FAERS Safety Report 21477502 (Version 1)
Quarter: 2022Q4

REPORT INFORMATION
  Report Type: Report from Study
  Country: MX (occurrence: MX)
  Receive Date: 20221019
  Receipt Date: 20221019
  Transmission Date: 20230113
  Serious: Yes (Death)
  Sender: FDA-Public Use
  Company Number: MX-NOVARTISPH-NVSC2022MX234755

PATIENT
  Sex: Female

DRUGS (1)
  1. KISQALI [Suspect]
     Active Substance: RIBOCICLIB
     Indication: Breast cancer
     Dosage: UNK (3 MONTHS AGO)
     Route: 048

REACTIONS (4)
  - Death [Fatal]
  - Lung disorder [Unknown]
  - Dyspnoea [Unknown]
  - Hepatic pain [Recovering/Resolving]
